FAERS Safety Report 8355157-7 (Version None)
Quarter: 2012Q2

REPORT INFORMATION
  Report Type: 
  Country: None (occurrence: None)
  Receive Date: 20120511
  Receipt Date: 20120506
  Transmission Date: 20120825
  Serious: Yes (Other)
  Sender: FDA-Public Use
  Company Number: CHPA2012GB009993

PATIENT
  Sex: Male

DRUGS (1)
  1. NICOTINELL TTS 20 [Suspect]
     Indication: SMOKING CESSATION THERAPY
     Dosage: 14 MG, QD
     Route: 062

REACTIONS (4)
  - OVERDOSE [None]
  - TREATMENT NONCOMPLIANCE [None]
  - DYSPNOEA [None]
  - CHEST DISCOMFORT [None]
